FAERS Safety Report 23942607 (Version 1)
Quarter: 2024Q2

REPORT INFORMATION
  Report Type: Spontaneous
  Country: US (occurrence: US)
  Receive Date: 20240605
  Receipt Date: 20240605
  Transmission Date: 20240716
  Serious: No
  Sender: FDA-Public Use
  Company Number: US-002147023-NVSC2024US117938

PATIENT
  Sex: Female

DRUGS (2)
  1. COSENTYX [Suspect]
     Active Substance: SECUKINUMAB
     Indication: Product used for unknown indication
     Dosage: 150 MG, QW (FIRST LOADING DOSE)
     Route: 065
     Dates: start: 20240501
  2. COSENTYX [Suspect]
     Active Substance: SECUKINUMAB
     Dosage: 150 MG, QW (FIRST LOADING DOSE)
     Route: 065
     Dates: start: 20240529

REACTIONS (2)
  - Muscle spasms [Unknown]
  - Diarrhoea [Unknown]
